FAERS Safety Report 10420917 (Version 1)
Quarter: 2014Q3

REPORT INFORMATION
  Report Type: Spontaneous
  Country: US (occurrence: None)
  Receive Date: 20140714
  Receipt Date: 20140714
  Transmission Date: 20150326
  Serious: No
  Sender: FDA-Public Use
  Company Number: 2014US003213

PATIENT
  Age: 76 Year
  Sex: Male

DRUGS (4)
  1. GLIPIZIDE. [Concomitant]
     Active Substance: GLIPIZIDE
  2. CENTRUM (MULTIVITAMINS) [Concomitant]
  3. METFORMIN [Concomitant]
     Active Substance: METFORMIN HYDROCHLORIDE
  4. ICLUSIG [Suspect]
     Active Substance: PONATINIB
     Indication: CHRONIC MYELOID LEUKAEMIA
     Route: 048
     Dates: start: 20140219

REACTIONS (1)
  - Constipation [None]

NARRATIVE: CASE EVENT DATE: 20140313
